FAERS Safety Report 7495793-3 (Version None)
Quarter: 2011Q2

REPORT INFORMATION
  Report Type: 
  Country: None (occurrence: None)
  Receive Date: 20110523
  Receipt Date: 20110509
  Transmission Date: 20111010
  Serious: Yes (Hospitalization, Other)
  Sender: FDA-Public Use
  Company Number: CA-ELI_LILLY_AND_COMPANY-CA201105002121

PATIENT
  Sex: Female

DRUGS (20)
  1. ZYPREXA [Suspect]
     Indication: AGITATION
     Dosage: 5 MG, EACH EVENING
  2. IMIPRAMINE [Concomitant]
  3. EFFEXOR [Concomitant]
  4. ZYPREXA [Suspect]
     Dosage: 30 MG, EACH EVENING
  5. TRAZODONE HCL [Concomitant]
  6. LITHIUM CARBONATE [Concomitant]
  7. SEROQUEL [Concomitant]
  8. SERZONE [Concomitant]
  9. PROZAC [Concomitant]
  10. MANERIX [Concomitant]
  11. ZYPREXA [Suspect]
     Dosage: 10 MG, EACH EVENING
  12. CLONAZEPAM [Concomitant]
  13. DESIPRAMIDE HCL [Concomitant]
  14. ZYPREXA ZYDIS [Suspect]
     Indication: AGITATION
     Dosage: 10 MG, EACH EVENING
  15. ZYPREXA ZYDIS [Suspect]
     Dosage: 5 MG, EACH EVENING
  16. ZOLOFT [Concomitant]
  17. ZYPREXA [Suspect]
     Dosage: 15 MG, EACH EVENING
  18. PAXIL [Concomitant]
  19. NOZINAN [Concomitant]
  20. FLURAZEPAM [Concomitant]

REACTIONS (20)
  - SEROTONIN SYNDROME [None]
  - OEDEMA PERIPHERAL [None]
  - PERIPHERAL SENSORY NEUROPATHY [None]
  - ASPARTATE AMINOTRANSFERASE INCREASED [None]
  - CEREBROVASCULAR ACCIDENT [None]
  - PARAESTHESIA [None]
  - NERVE INJURY [None]
  - BLOOD PRESSURE INCREASED [None]
  - CARDIAC FAILURE CONGESTIVE [None]
  - BLOOD CHOLESTEROL INCREASED [None]
  - BLOOD TRIGLYCERIDES INCREASED [None]
  - MYOCARDIAL INFARCTION [None]
  - LOSS OF CONSCIOUSNESS [None]
  - TYPE 2 DIABETES MELLITUS [None]
  - OFF LABEL USE [None]
  - CORONARY ARTERY DISEASE [None]
  - NEUROLEPTIC MALIGNANT SYNDROME [None]
  - INCISIONAL DRAINAGE [None]
  - OVERDOSE [None]
  - CARDIOMEGALY [None]
